FAERS Safety Report 6951304-X (Version None)
Quarter: 2010Q3

REPORT INFORMATION
  Report Type: 
  Country: None (occurrence: None)
  Receive Date: 20100828
  Receipt Date: 20100316
  Transmission Date: 20110219
  Serious: No
  Sender: FDA-Public Use
  Company Number: US-ABBOTT-10P-163-0633971-00

PATIENT
  Age: 60 Year
  Sex: Male

DRUGS (5)
  1. NIASPAN [Suspect]
     Indication: BLOOD CHOLESTEROL INCREASED
     Dates: start: 20100301, end: 20100301
  2. LISINOPRIL AND HYDROCHLOROTHIAZIDE [Suspect]
     Indication: PRODUCT USED FOR UNKNOWN INDICATION
     Dosage: 20/12.5 MG A DAY
  3. SYNTHROID [Concomitant]
     Indication: HYPOTHYROIDISM
  4. LANTUS [Concomitant]
     Indication: DIABETES MELLITUS
  5. REGULAR INSULIN [Concomitant]
     Indication: DIABETES MELLITUS
     Dosage: SLIDING SCALE

REACTIONS (1)
  - LOSS OF CONSCIOUSNESS [None]
